FAERS Safety Report 17085747 (Version 1)
Quarter: 2019Q4

REPORT INFORMATION
  Report Type: Spontaneous
  Country: US (occurrence: US)
  Receive Date: 20191127
  Receipt Date: 20191127
  Transmission Date: 20200122
  Serious: Yes (Hospitalization)
  Sender: FDA-Public Use
  Company Number: None

PATIENT
  Age: 69 Year
  Sex: Female

DRUGS (1)
  1. AMITIZA [Suspect]
     Active Substance: LUBIPROSTONE
     Indication: INFLAMMATORY BOWEL DISEASE
     Route: 048
     Dates: start: 20191126, end: 20191126

REACTIONS (4)
  - Nausea [None]
  - Dizziness [None]
  - Loss of consciousness [None]
  - Diarrhoea [None]

NARRATIVE: CASE EVENT DATE: 20191126
